FAERS Safety Report 7055894-0 (Version None)
Quarter: 2010Q4

REPORT INFORMATION
  Report Type: 
  Country: None (occurrence: None)
  Receive Date: 20101021
  Receipt Date: 20101018
  Transmission Date: 20110411
  Serious: Yes (Death, Hospitalization)
  Sender: FDA-Public Use
  Company Number: GB-GILEAD-2010-0032651

PATIENT
  Age: 53 Year
  Sex: Female

DRUGS (3)
  1. ATRIPLA [Suspect]
     Indication: HIV INFECTION
     Dates: start: 20100501
  2. TRUVADA [Suspect]
     Indication: HIV INFECTION
     Dates: start: 20090901, end: 20100501
  3. SUSTIVA [Suspect]
     Dates: start: 20090901, end: 20100501

REACTIONS (4)
  - FATIGUE [None]
  - GASTRIC DISORDER [None]
  - HEPATIC FAILURE [None]
  - LIVER DISORDER [None]
